FAERS Safety Report 6180735-3 (Version None)
Quarter: 2009Q2

REPORT INFORMATION
  Report Type: 
  Country: None (occurrence: None)
  Receive Date: 20090506
  Receipt Date: 20090429
  Transmission Date: 20091009
  Serious: Yes (Other)
  Sender: FDA-Public Use
  Company Number: GB-PFIZER INC-2009205143

PATIENT

DRUGS (5)
  1. AMLODIPINE BESYLATE [Suspect]
     Indication: HYPERTENSION
     Dosage: 5 MG, UDAILY
     Dates: start: 20090323
  2. AMLODIPINE BESYLATE [Suspect]
     Dosage: 10 MG, DAILY
     Dates: end: 20090417
  3. ACETYLSALICYLIC ACID [Concomitant]
  4. BISOPROLOL FUMARATE [Concomitant]
  5. LISINOPRIL [Concomitant]

REACTIONS (1)
  - CONTUSION [None]
